FAERS Safety Report 4862079-2 (Version None)
Quarter: 2005Q4

REPORT INFORMATION
  Report Type: 
  Country: None (occurrence: None)
  Receive Date: 20051201
  Receipt Date: 20050816
  Transmission Date: 20060501
  Serious: No
  Sender: FDA-Public Use
  Company Number: 2005PV001218

PATIENT
  Age: 64 Year
  Sex: Male
  Weight: 91.173 kg

DRUGS (13)
  1. BYETTA [Suspect]
     Indication: DIABETES MELLITUS NON-INSULIN-DEPENDENT
     Dosage: 10 MCG;BID;SC
     Route: 058
     Dates: start: 20050713
  2. GLUCOPHAGE [Concomitant]
  3. LIPITOR [Concomitant]
  4. GLIPIZIDE [Concomitant]
  5. ACTOS [Concomitant]
  6. ZYRTEC [Concomitant]
  7. NEXIUM [Concomitant]
  8. COREG [Concomitant]
  9. DIOVAN [Concomitant]
  10. FUROSEMIDE [Concomitant]
  11. FOLIC ACID [Concomitant]
  12. VITAMIN B COMPLEX CAP [Concomitant]
  13. ASPIRIN [Concomitant]

REACTIONS (4)
  - BLOOD GLUCOSE DECREASED [None]
  - BLOOD GLUCOSE FLUCTUATION [None]
  - NAUSEA [None]
  - VOMITING [None]
